FAERS Safety Report 21140502 (Version 1)
Quarter: 2022Q3

REPORT INFORMATION
  Report Type: Spontaneous
  Country: FR (occurrence: FR)
  Receive Date: 20220728
  Receipt Date: 20220728
  Transmission Date: 20221027
  Serious: Yes (Hospitalization)
  Sender: FDA-Public Use
  Company Number: FR-STRIDES ARCOLAB LIMITED-2022SP009327

PATIENT
  Age: 25 Year
  Sex: Female

DRUGS (6)
  1. TRAMADOL [Suspect]
     Active Substance: TRAMADOL
     Indication: Pain
     Dosage: 100 MILLIGRAM (TO TAKE WHEN NEEDED (MAXIMUM OF 2 TABLETS PER DAY))
     Route: 048
     Dates: start: 2018
  2. TRAMADOL [Suspect]
     Active Substance: TRAMADOL
     Dosage: 500 MILLIGRAM (FIVE SLOW-RELEASE TABLETS PER DAY)
     Route: 048
     Dates: start: 2018
  3. TRAMADOL [Suspect]
     Active Substance: TRAMADOL
     Dosage: 2000 MILLIGRAM PER DAY
     Route: 065
     Dates: start: 2019
  4. TRAMADOL [Suspect]
     Active Substance: TRAMADOL
     Dosage: 1000 MILLIGRAM (UP TO 1000 MG DAILY) ORAL SOLUTION
     Route: 048
     Dates: start: 2019
  5. LAMOTRIGINE [Concomitant]
     Active Substance: LAMOTRIGINE
     Indication: Generalised tonic-clonic seizure
     Dosage: 100 MILLIGRAM PER DAY
     Route: 065
     Dates: start: 2019
  6. LAMOTRIGINE [Concomitant]
     Active Substance: LAMOTRIGINE
     Dosage: UNK
     Route: 065

REACTIONS (11)
  - Intentional product misuse [Unknown]
  - Suicide attempt [Unknown]
  - Drug dependence [Unknown]
  - Drug withdrawal syndrome [Unknown]
  - Impatience [Recovered/Resolved]
  - Anxiety [Recovered/Resolved]
  - Chills [Recovered/Resolved]
  - Overdose [Unknown]
  - Drug dependence [Unknown]
  - Drug dependence [Unknown]
  - Diarrhoea [Recovered/Resolved]
